FAERS Safety Report 16231810 (Version 1)
Quarter: 2019Q2

REPORT INFORMATION
  Report Type: Spontaneous
  Country: CA (occurrence: CA)
  Receive Date: 20190424
  Receipt Date: 20190424
  Transmission Date: 20190711
  Serious: Yes (Hospitalization, Other)
  Sender: FDA-Public Use
  Company Number: CA-TEVA-2019-CA-1040444

PATIENT
  Sex: Male

DRUGS (3)
  1. FENTANYL. [Suspect]
     Active Substance: FENTANYL
     Indication: PAIN
     Dosage: PATCH
     Route: 065
  2. MORPHINE SULFATE. [Suspect]
     Active Substance: MORPHINE SULFATE
     Indication: PAIN
     Route: 065
  3. APO-OXYCODONE CR [Suspect]
     Active Substance: OXYCODONE HYDROCHLORIDE
     Indication: PAIN
     Dosage: (EXTENDED- RELEASE)
     Route: 065

REACTIONS (6)
  - Depressed mood [Recovered/Resolved]
  - Adverse event [Recovered/Resolved]
  - Drug ineffective [Recovered/Resolved]
  - Sleep disorder [Recovered/Resolved]
  - Drug dependence [Recovered/Resolved]
  - Decreased appetite [Recovered/Resolved]
